FAERS Safety Report 9626320 (Version 4)
Quarter: 2013Q4

REPORT INFORMATION
  Report Type: Report from Study
  Country: TR (occurrence: TR)
  Receive Date: 20131016
  Receipt Date: 20131211
  Transmission Date: 20140711
  Serious: Yes (Other)
  Sender: FDA-Public Use
  Company Number: TR-ABBVIE-13P-161-1144423-00

PATIENT
  Age: 59 Year
  Sex: Male
  Weight: 64 kg

DRUGS (4)
  1. HUMIRA [Suspect]
     Indication: SPONDYLOARTHROPATHY
     Dosage: THERAPY STARTED ONE YEAR AGO AND ENDED 3 MONTHS AGO
     Route: 058
     Dates: start: 2012, end: 201306
  2. CORASPIN [Concomitant]
     Indication: HYPERTENSION
  3. DILATREND [Concomitant]
     Indication: HYPERTENSION
  4. BELOC [Concomitant]
     Indication: HYPERTENSION

REACTIONS (3)
  - Hyperhidrosis [Recovered/Resolved]
  - Weight decreased [Recovered/Resolved]
  - Tuberculosis liver [Not Recovered/Not Resolved]
